FAERS Safety Report 10224386 (Version 1)
Quarter: 2014Q2

REPORT INFORMATION
  Report Type: Spontaneous
  Country: US (occurrence: US)
  Receive Date: 20140609
  Receipt Date: 20140609
  Transmission Date: 20141212
  Serious: No
  Sender: FDA-Public Use
  Company Number: US-PFIZER INC-2014157426

PATIENT
  Age: 63 Year
  Sex: Female
  Weight: 68 kg

DRUGS (1)
  1. ZOLOFT [Suspect]
     Indication: ANXIETY DISORDER
     Dosage: UNK
     Dates: start: 2002

REACTIONS (1)
  - Insomnia [Recovered/Resolved]
